FAERS Safety Report 6119135-0 (Version None)
Quarter: 2009Q1

REPORT INFORMATION
  Report Type: 
  Country: None (occurrence: None)
  Receive Date: 20090311
  Receipt Date: 20090224
  Transmission Date: 20090719
  Serious: Yes (Hospitalization, Other)
  Sender: FDA-Public Use
  Company Number: 2009S1003358

PATIENT
  Age: 67 Year
  Sex: Male

DRUGS (7)
  1. SPIRONOLACTONE [Suspect]
     Indication: CARDIAC FAILURE
     Dosage: 50 MG;DAILY;ORAL
     Route: 048
     Dates: start: 20080601
  2. TORASEMIDE (TORASEMIDE) (200 MG) [Suspect]
     Indication: SPINAL DISORDER
     Dosage: 200 MG;TWICE A DAY;ORAL
     Route: 048
     Dates: start: 20080201
  3. CELEBREX [Concomitant]
  4. METFORMIN HCL [Concomitant]
  5. SPIRIVA [Concomitant]
  6. THIAMAZOLE [Concomitant]
  7. VIANI [Concomitant]

REACTIONS (4)
  - CARDIAC FAILURE [None]
  - DEPRESSION [None]
  - DRUG INTERACTION [None]
  - HYPOTENSION [None]
